FAERS Safety Report 24843576 (Version 2)
Quarter: 2025Q4

REPORT INFORMATION
  Report Type: Report from Study
  Country: US (occurrence: US)
  Receive Date: 20250115
  Receipt Date: 20251203
  Transmission Date: 20260118
  Serious: Yes (Other)
  Sender: BAUSCH AND LOMB
  Company Number: US-BAUSCH-BL-2025-000398

PATIENT
  Age: 47 Year
  Sex: Female

DRUGS (1)
  1. SILIQ [Suspect]
     Active Substance: BRODALUMAB
     Indication: Psoriasis
     Dosage: 210 MG/1.5ML, SOSY (SOLUTION PREFILLED SYRINGE)
     Route: 065
     Dates: start: 202412

REACTIONS (3)
  - Lower limb fracture [Unknown]
  - Ligament sprain [Unknown]
  - Fatigue [Unknown]
